FAERS Safety Report 8182166-3 (Version None)
Quarter: 2012Q1

REPORT INFORMATION
  Report Type: 
  Country: None (occurrence: None)
  Receive Date: 20120302
  Receipt Date: 20120224
  Transmission Date: 20120608
  Serious: Yes (Hospitalization, Other)
  Sender: FDA-Public Use
  Company Number: US-ABBOTT-12P-163-0909070-00

PATIENT
  Age: 70 Year
  Sex: Male

DRUGS (9)
  1. METFORMIN HCL [Concomitant]
     Indication: DIABETES MELLITUS
  2. FOSAMAX [Concomitant]
     Indication: BONE DISORDER
  3. MULTI-VITAMIN [Concomitant]
     Indication: VITAMIN SUPPLEMENTATION
  4. ZOCOR [Concomitant]
     Indication: BLOOD CHOLESTEROL
  5. ATENOLOL [Concomitant]
     Indication: BLOOD PRESSURE
  6. NIASPAN [Concomitant]
     Indication: BLOOD CHOLESTEROL
  7. HUMIRA [Suspect]
     Indication: PUSTULAR PSORIASIS
     Dates: start: 20090601
  8. ASPIRIN [Concomitant]
     Indication: PROPHYLAXIS
  9. ASPIRIN [Concomitant]
     Indication: CARDIAC DISORDER

REACTIONS (5)
  - FEELING ABNORMAL [None]
  - MENIERE'S DISEASE [None]
  - BLOOD CHOLESTEROL ABNORMAL [None]
  - KNEE ARTHROPLASTY [None]
  - PSORIASIS [None]
